FAERS Safety Report 9666444 (Version 1)
Quarter: 2013Q4

REPORT INFORMATION
  Report Type: Spontaneous
  Country: US (occurrence: US)
  Receive Date: 20131104
  Receipt Date: 20131104
  Transmission Date: 20140711
  Serious: Yes (Other)
  Sender: FDA-Public Use
  Company Number: US-SA-2013SA111973

PATIENT
  Age: 31 Year
  Sex: Male
  Weight: 69.4 kg

DRUGS (6)
  1. FABRAZYME [Suspect]
     Indication: FABRY^S DISEASE
     Route: 042
  2. LYRICA [Concomitant]
  3. WELLBUTRIN [Concomitant]
  4. CYCLOBENZAPRINE [Concomitant]
  5. PERCOCET [Concomitant]
  6. DILAUDID [Concomitant]

REACTIONS (1)
  - Tooth infection [Unknown]
